FAERS Safety Report 12082832 (Version 3)
Quarter: 2016Q1

REPORT INFORMATION
  Report Type: Report from Study
  Country: MX (occurrence: MX)
  Receive Date: 20160217
  Receipt Date: 20160317
  Transmission Date: 20160526
  Serious: Yes (Other)
  Sender: FDA-Public Use
  Company Number: PHHY2016MX020109

PATIENT
  Sex: Male
  Weight: 66 kg

DRUGS (4)
  1. GINKGO BILOBA [Concomitant]
     Active Substance: GINKGO
     Indication: CEREBRAL DISORDER
     Dosage: 1 DF, QD
     Route: 048
  2. NOOTROPIL [Concomitant]
     Active Substance: PIRACETAM
     Indication: CEREBRAL DISORDER
     Dosage: 1 DF, QD
     Route: 048
     Dates: start: 2012
  3. EXFORGE [Suspect]
     Active Substance: AMLODIPINE BESYLATE\VALSARTAN
     Indication: BLOOD PRESSURE INCREASED
     Dosage: 1 DF, (5/160 MG) 5 MG OF AMLODIPINE AND 160 MG OF VALSARTAN)
     Route: 065
  4. EXFORGE [Suspect]
     Active Substance: AMLODIPINE BESYLATE\VALSARTAN
     Indication: HYPERTENSION
     Dosage: 1 DF (10 MG OF AMLODIPINE AND 160 MG OF VALSARTAN), QD
     Route: 065
     Dates: start: 2008

REACTIONS (3)
  - Cerebral infarction [Recovered/Resolved with Sequelae]
  - Dizziness [Not Recovered/Not Resolved]
  - Off label use [Not Recovered/Not Resolved]

NARRATIVE: CASE EVENT DATE: 2010
